FAERS Safety Report 4433129-2 (Version None)
Quarter: 2004Q3

REPORT INFORMATION
  Report Type: 
  Country: None (occurrence: None)
  Receive Date: 20040823
  Receipt Date: 20040805
  Transmission Date: 20050211
  Serious: Yes (Hospitalization)
  Sender: FDA-Public Use
  Company Number: K200401208

PATIENT
  Age: 59 Year
  Sex: Male

DRUGS (8)
  1. ALTACE [Suspect]
     Indication: HYPERTENSION
  2. CAMPTOSAR [Suspect]
     Indication: LARYNGEAL CANCER
     Dosage: 60 MG/M2, D1 + D8 CYCLICALLY
     Route: 042
     Dates: start: 20040708, end: 20040715
  3. DOCETAXEL (DOCETAXEL) [Suspect]
     Indication: LARYNGEAL CANCER
     Dosage: 35 MG/M2, D1 + D8 CYCLICALLY, INTRAVENOUS
     Route: 042
     Dates: start: 20040708, end: 20040715
  4. AMBIEN [Concomitant]
  5. PAXIL [Concomitant]
  6. ROXICET [Concomitant]
  7. SYNTHROID [Concomitant]
  8. ZOCOR [Concomitant]

REACTIONS (11)
  - ABDOMINAL PAIN [None]
  - ASTHENIA [None]
  - DEHYDRATION [None]
  - DIARRHOEA [None]
  - FATIGUE [None]
  - MALAISE [None]
  - MARKEDLY REDUCED DIETARY INTAKE [None]
  - NAUSEA [None]
  - PURULENT DISCHARGE [None]
  - SKIN DISORDER [None]
  - VOMITING [None]
